FAERS Safety Report 15540639 (Version 1)
Quarter: 2018Q4

REPORT INFORMATION
  Report Type: Spontaneous
  Country: US (occurrence: US)
  Receive Date: 20181023
  Receipt Date: 20181023
  Transmission Date: 20190205
  Serious: Yes (Other)
  Sender: FDA-Public Use
  Company Number: US-ELI_LILLY_AND_COMPANY-US201810008513

PATIENT
  Age: 64 Year

DRUGS (1)
  1. BASAGLAR [Suspect]
     Active Substance: INSULIN GLARGINE
     Indication: PRODUCT USED FOR UNKNOWN INDICATION
     Dosage: UNK, UNKNOWN
     Route: 065
     Dates: start: 2017

REACTIONS (6)
  - Chronic kidney disease [Unknown]
  - Myocardial infarction [Unknown]
  - Eye oedema [Unknown]
  - Blood glucose increased [Unknown]
  - Visual impairment [Unknown]
  - Blood disorder [Unknown]
